FAERS Safety Report 5918014-9 (Version None)
Quarter: 2008Q4

REPORT INFORMATION
  Report Type: 
  Country: None (occurrence: None)
  Receive Date: 20081014
  Receipt Date: 20080820
  Transmission Date: 20090506
  Serious: Yes (Hospitalization, Other)
  Sender: FDA-Public Use
  Company Number: US-PURDUE-USA_2008_0034640

PATIENT
  Sex: Female

DRUGS (1)
  1. OXYCONTIN [Suspect]
     Indication: BACK PAIN
     Dates: end: 20030101

REACTIONS (5)
  - BRAIN OEDEMA [None]
  - CEREBROVASCULAR ACCIDENT [None]
  - CONVULSION [None]
  - FACIAL PALSY [None]
  - HEAD INJURY [None]
